FAERS Safety Report 7225688-1 (Version None)
Quarter: 2011Q1

REPORT INFORMATION
  Report Type: 
  Country: None (occurrence: None)
  Receive Date: 20110113
  Receipt Date: 20110112
  Transmission Date: 20110831
  Serious: Yes (Hospitalization)
  Sender: FDA-Public Use
  Company Number: DE-BRISTOL-MYERS SQUIBB COMPANY-15482573

PATIENT
  Age: 60 Year
  Sex: Male

DRUGS (9)
  1. VITAMIN B-12 [Concomitant]
     Dates: start: 20100915
  2. CISPLATIN [Suspect]
     Indication: HEAD AND NECK CANCER
     Dosage: MOST RECENT DOSE ON 23-DEC-2010.
     Route: 042
     Dates: start: 20100923
  3. KYTRIL [Concomitant]
     Indication: PROPHYLAXIS
     Dates: start: 20100916
  4. DEXAMETHASONE [Concomitant]
     Indication: PROPHYLAXIS
     Dates: start: 20100922
  5. KYTRIL [Concomitant]
     Dates: start: 20100923
  6. NEXIUM [Concomitant]
     Indication: PROPHYLAXIS
  7. FOLIC ACID [Concomitant]
     Indication: PROPHYLAXIS
     Dates: start: 20100916
  8. CETUXIMAB [Suspect]
     Indication: HEAD AND NECK CANCER
     Dosage: MOST RECENT DOSE RECEIVED ON 23DEC10;LOADING DOSE400MG/M2,ON DAY ONE OF CYCLE 1,
     Route: 042
     Dates: start: 20100923
  9. PEMETREXED DISODIUM [Suspect]
     Indication: HEAD AND NECK CANCER
     Dosage: MOST RECENT DOSE RECEIVED ON 23DEC10
     Route: 042
     Dates: start: 20100923

REACTIONS (2)
  - ANAEMIA [None]
  - POST PROCEDURAL HAEMORRHAGE [None]
